FAERS Safety Report 7704050-9 (Version None)
Quarter: 2011Q3

REPORT INFORMATION
  Report Type: 
  Country: None (occurrence: None)
  Receive Date: 20110729
  Receipt Date: 20100916
  Transmission Date: 20111222
  Serious: Yes (Hospitalization)
  Sender: FDA-Public Use
  Company Number: US-JNJFOC-20100905960

PATIENT
  Sex: Female

DRUGS (2)
  1. IMODIUM MULTI-SYMPTOM RELIEF [Suspect]
     Indication: DIARRHOEA
     Dosage: PRODUCT IS TAKEN AS RECOMMENDED, 5 YEARS AGO
  2. IMODIUM AD [Suspect]
     Indication: DIARRHOEA
     Dosage: PRODUCT IS TAKEN AS RECOMMENDED, 5 YEARS AGO

REACTIONS (1)
  - DRUG INEFFECTIVE [None]
